FAERS Safety Report 16400310 (Version 2)
Quarter: 2019Q2

REPORT INFORMATION
  Report Type: Spontaneous
  Country: US (occurrence: US)
  Receive Date: 20190606
  Receipt Date: 20190614
  Transmission Date: 20190711
  Serious: Yes (Life-Threatening, Hospitalization, Other)
  Sender: FDA-Public Use
  Company Number: US-009507513-1905USA013280

PATIENT
  Age: 80 Year
  Sex: Female

DRUGS (7)
  1. PROVENTIL [Suspect]
     Active Substance: ALBUTEROL
     Dosage: AS NEEDED
     Route: 055
  2. ALBUTEROL SULFATE. [Suspect]
     Active Substance: ALBUTEROL SULFATE
     Indication: ASTHMA
     Dosage: UNK
     Route: 055
     Dates: start: 201605
  3. CELEBREX [Concomitant]
     Active Substance: CELECOXIB
  4. PROVENTIL [Suspect]
     Active Substance: ALBUTEROL
     Dosage: AS NEEDED
     Route: 055
     Dates: start: 20190523
  5. THEO-DUR [Concomitant]
     Active Substance: THEOPHYLLINE ANHYDROUS
     Dosage: 200 MG ONCE DAILY
  6. ASPIRIN. [Concomitant]
     Active Substance: ASPIRIN
  7. PROVENTIL [Suspect]
     Active Substance: ALBUTEROL
     Indication: ASTHMA
     Dosage: UNK, AS NEEDED
     Route: 055

REACTIONS (7)
  - Non-Hodgkin^s lymphoma [Recovered/Resolved]
  - Tremor [Recovered/Resolved]
  - Product quality issue [Unknown]
  - Crying [Recovered/Resolved]
  - Expired product administered [Unknown]
  - Lung neoplasm malignant [Recovered/Resolved]
  - Poor quality device used [Unknown]

NARRATIVE: CASE EVENT DATE: 2001
